FAERS Safety Report 14096833 (Version 3)
Quarter: 2019Q3

REPORT INFORMATION
  Report Type: Spontaneous
  Country: US (occurrence: US)
  Receive Date: 20171017
  Receipt Date: 20190917
  Transmission Date: 20191004
  Serious: No
  Sender: FDA-Public Use
  Company Number: US-PFIZER INC-2017445693

PATIENT
  Sex: Female

DRUGS (2)
  1. BACITRACIN. [Suspect]
     Active Substance: BACITRACIN
     Dosage: UNK
  2. POLYMYXIN B. [Suspect]
     Active Substance: POLYMYXIN B
     Dosage: UNK

REACTIONS (2)
  - Skin exfoliation [Unknown]
  - Drug hypersensitivity [Unknown]
